FAERS Safety Report 7969237-9 (Version None)
Quarter: 2011Q4

REPORT INFORMATION
  Report Type: 
  Country: None (occurrence: None)
  Receive Date: 20111209
  Receipt Date: 20111201
  Transmission Date: 20120403
  Serious: Yes (Disabling)
  Sender: FDA-Public Use
  Company Number: CA-MERCK-1107USA02891

PATIENT
  Age: 67 Year
  Sex: Female

DRUGS (6)
  1. SYNTHROID [Concomitant]
     Route: 065
  2. FOSAMAX PLUS D [Suspect]
     Indication: OSTEOPOROSIS
     Dosage: FIRST TABLET
     Route: 048
     Dates: start: 20110626
  3. FOSAMAX PLUS D [Suspect]
     Dosage: SECOND TABLET
     Route: 048
     Dates: start: 20110703
  4. FOSAMAX PLUS D [Suspect]
     Dosage: THIRD TABLET
     Route: 048
     Dates: start: 20110710, end: 20110714
  5. DIOVAN [Concomitant]
     Route: 065
  6. LETROZOLE [Concomitant]
     Route: 065

REACTIONS (4)
  - GAIT DISTURBANCE [None]
  - JOINT SWELLING [None]
  - ABASIA [None]
  - PAIN IN EXTREMITY [None]
